FAERS Safety Report 22632112 (Version 3)
Quarter: 2023Q2

REPORT INFORMATION
  Report Type: Report from Study
  Country: US (occurrence: US)
  Receive Date: 20230623
  Receipt Date: 20230628
  Transmission Date: 20230721
  Serious: No
  Sender: FDA-Public Use
  Company Number: US-002147023-NVSC2023US137985

PATIENT

DRUGS (9)
  1. HYDROCORTISONE [Suspect]
     Active Substance: HYDROCORTISONE
     Indication: Psoriasis
     Dosage: UNK
     Route: 065
  2. PREDNISONE [Suspect]
     Active Substance: PREDNISONE
     Indication: Psoriasis
     Dosage: UNK
     Route: 065
  3. METFORMIN [Suspect]
     Active Substance: METFORMIN HYDROCHLORIDE
     Indication: Psoriasis
     Dosage: UNK
     Route: 065
  4. DOXYCYCLINE [Suspect]
     Active Substance: DOXYCYCLINE
     Indication: Psoriasis
     Dosage: UNK
     Route: 065
  5. CLOBETASOL [Suspect]
     Active Substance: CLOBETASOL
     Indication: Psoriasis
     Dosage: UNK
     Route: 065
  6. VASELINE PURE [Suspect]
     Active Substance: PETROLATUM
     Indication: Psoriasis
     Dosage: UNK
     Route: 065
  7. ISOTRETINOIN [Suspect]
     Active Substance: ISOTRETINOIN
     Indication: Psoriasis
     Dosage: UNK
     Route: 065
  8. HYDROCODONE [Suspect]
     Active Substance: HYDROCODONE
     Indication: Psoriasis
     Dosage: UNK
     Route: 065
  9. HUMIRA [Suspect]
     Active Substance: ADALIMUMAB
     Indication: Product used for unknown indication
     Dosage: UNK
     Route: 065

REACTIONS (14)
  - Neurodermatitis [Unknown]
  - Acne conglobata [Unknown]
  - Inflammation [Unknown]
  - Sinusitis [Unknown]
  - Depression [Unknown]
  - Xerosis [Unknown]
  - Insomnia [Unknown]
  - Blood triglycerides abnormal [Unknown]
  - Psoriasis [Unknown]
  - Lip dry [Unknown]
  - Product use in unapproved indication [Unknown]
  - Treatment failure [Unknown]
  - Drug ineffective [Unknown]
  - Lymphocyte count increased [Unknown]
